FAERS Safety Report 7282356-8 (Version None)
Quarter: 2011Q1

REPORT INFORMATION
  Report Type: 
  Country: None (occurrence: None)
  Receive Date: 20110209
  Receipt Date: 20110124
  Transmission Date: 20110831
  Serious: Yes (Other)
  Sender: FDA-Public Use
  Company Number: TR-RANBAXY-2010RR-39748

PATIENT
  Age: 27 Year
  Sex: Male

DRUGS (5)
  1. RIFAMPICIN [Suspect]
     Indication: ENDOCARDITIS
     Dosage: 600 MG, UNK
     Route: 048
  2. VANCOMYCIN [Suspect]
     Indication: ENDOCARDITIS
  3. XYNTABALIN [Suspect]
     Indication: ENDOCARDITIS BACTERIAL
  4. DOXYCYCLINE [Suspect]
     Indication: ENDOCARDITIS BACTERIAL
     Dosage: 100 MG, BID
     Route: 048
  5. COTRIM [Suspect]
     Indication: ENDOCARDITIS BACTERIAL
     Dosage: UNK
     Route: 048

REACTIONS (3)
  - BRUCELLOSIS [None]
  - DRUG RESISTANCE [None]
  - CANDIDIASIS [None]
